FAERS Safety Report 8774660 (Version 1)
Quarter: 2012Q4

REPORT INFORMATION
  Report Type: 
  Country: CA (occurrence: CA)
  Receive Date: 20120905
  Receipt Date: 20120905
  Transmission Date: 20130627
  Serious: Yes (Hospitalization)
  Sender: FDA-Public Use
  Company Number: CA-ELI_LILLY_AND_COMPANY-CA201208008880

PATIENT
  Age: 90 Year
  Sex: Female

DRUGS (9)
  1. FORTEO [Suspect]
     Indication: OSTEOPOROSIS
     Dosage: 20 ug, qd
     Route: 058
     Dates: start: 20110813
  2. VITAMIN D NOS [Concomitant]
  3. CALCIUM [Concomitant]
  4. ASPIRIN [Concomitant]
     Dosage: 80 mg, unknown
  5. AMLODIPINE [Concomitant]
  6. SYNTHROID [Concomitant]
  7. VITAMIN B12 [Concomitant]
  8. PANTOPRAZOLE [Concomitant]
  9. ACETAMINOPHEN [Concomitant]

REACTIONS (2)
  - Diarrhoea [Recovering/Resolving]
  - Dehydration [Recovering/Resolving]
